FAERS Safety Report 5823326-3 (Version None)
Quarter: 2008Q3

REPORT INFORMATION
  Report Type: 
  Country: None (occurrence: None)
  Receive Date: 20080725
  Receipt Date: 20070618
  Transmission Date: 20090109
  Serious: No
  Sender: FDA-Public Use
  Company Number: US-AMGEN-KDL224081

PATIENT
  Sex: Female
  Weight: 59 kg

DRUGS (1)
  1. PROCRIT [Suspect]
     Indication: DIALYSIS
     Dates: start: 20060920, end: 20061006

REACTIONS (2)
  - PRURITUS [None]
  - THROAT IRRITATION [None]
